FAERS Safety Report 23564551 (Version 1)
Quarter: 2024Q1

REPORT INFORMATION
  Report Type: Spontaneous
  Country: US (occurrence: US)
  Receive Date: 20240226
  Receipt Date: 20240226
  Transmission Date: 20240410
  Serious: Yes (Hospitalization, Other)
  Sender: FDA-Public Use
  Company Number: US-ALEMBIC-2023SCAL001297

PATIENT

DRUGS (14)
  1. LITHIUM CARBONATE [Interacting]
     Active Substance: LITHIUM CARBONATE
     Indication: Major depression
     Dosage: 300 MILLIGRAM, QD
     Route: 065
  2. LITHIUM CARBONATE [Interacting]
     Active Substance: LITHIUM CARBONATE
     Indication: Bipolar disorder
     Dosage: 450 MILLIGRAM, QD, IN THE EVENING
     Route: 065
  3. DULOXETINE HYDROCHLORIDE [Suspect]
     Active Substance: DULOXETINE HYDROCHLORIDE
     Indication: Major depression
     Dosage: 600 MILLIGRAM, QD
     Route: 065
  4. BUPROPION HYDROCHLORIDE [Suspect]
     Active Substance: BUPROPION HYDROCHLORIDE
     Indication: Major depression
     Dosage: 300 MILLIGRAM, QD
     Route: 065
  5. VENLAFAXINE [Suspect]
     Active Substance: VENLAFAXINE HYDROCHLORIDE
     Indication: Major depression
     Dosage: 150 MILLIGRAM, QD
     Route: 065
  6. CLONAZEPAM [Concomitant]
     Active Substance: CLONAZEPAM
     Indication: Major depression
     Dosage: 0.5 MILLIGRAM, BID
     Route: 065
  7. CLOZAPINE [Interacting]
     Active Substance: CLOZAPINE
     Indication: Product used for unknown indication
     Dosage: 75 MILLIGRAM, IN THE MORNING
     Route: 065
  8. CLOZAPINE [Interacting]
     Active Substance: CLOZAPINE
     Dosage: 125 MILLIGRAM OVER 10 DAYS
     Route: 065
  9. CLOZAPINE [Interacting]
     Active Substance: CLOZAPINE
     Dosage: 25 MILLIGRAM, IN THE MORNING
     Route: 065
  10. CLOZAPINE [Interacting]
     Active Substance: CLOZAPINE
     Dosage: 50 MILLIGRAM, IN THE EVENING
     Route: 065
  11. CLOZAPINE [Interacting]
     Active Substance: CLOZAPINE
     Dosage: 50 MILLIGRAM, BID
     Route: 065
  12. MIRTAZAPINE [Concomitant]
     Active Substance: MIRTAZAPINE
     Indication: Major depression
     Dosage: 45 MILLIGRAM, QD
     Route: 065
  13. TRAZODONE [Concomitant]
     Active Substance: TRAZODONE HYDROCHLORIDE
     Indication: Major depression
     Dosage: 100 MILLIGRAM, QD
     Route: 065
  14. VALPROATE [Concomitant]
     Active Substance: VALPROIC ACID
     Indication: Major depression
     Dosage: 750 MILLIGRAM
     Route: 065

REACTIONS (6)
  - Myoclonus [Recovered/Resolved]
  - Toxicity to various agents [Unknown]
  - Urinary incontinence [Unknown]
  - Dyskinesia [Recovered/Resolved]
  - Therapy partial responder [Unknown]
  - Drug interaction [Unknown]
